FAERS Safety Report 8325736-1 (Version None)
Quarter: 2012Q2

REPORT INFORMATION
  Report Type: 
  Country: None (occurrence: None)
  Receive Date: 20120427
  Receipt Date: 20120405
  Transmission Date: 20120825
  Serious: Yes (Hospitalization)
  Sender: FDA-Public Use
  Company Number: US-CYPR-2012-000013

PATIENT
  Sex: Male
  Weight: 92.5338 kg

DRUGS (9)
  1. NITROGLYCERIN [Concomitant]
  2. CYPHER STENT [Concomitant]
  3. VALSARTAN [Concomitant]
  4. HYDROCHLOROTHIASIDE [Concomitant]
  5. CLOPIDOGREL [Suspect]
     Indication: ANTIPLATELET THERAPY
     Dosage: (75 MG QD ORAL)
     Route: 048
     Dates: start: 20110302
  6. METOPROLOL SUCCINATE [Concomitant]
  7. ASPIRIN [Suspect]
     Indication: CORONARY ARTERY DISEASE
     Dosage: (81 MG QD ORAL)
     Route: 048
     Dates: start: 20100216
  8. ROSUVASTATIN [Concomitant]
  9. SYNTHROID [Concomitant]

REACTIONS (7)
  - DYSGEUSIA [None]
  - COUGH [None]
  - GASTRITIS [None]
  - PULMONARY HYPERTENSION [None]
  - BLOOD POTASSIUM DECREASED [None]
  - NON-CARDIAC CHEST PAIN [None]
  - BLOOD GLUCOSE INCREASED [None]
